FAERS Safety Report 6558011-6 (Version None)
Quarter: 2010Q1

REPORT INFORMATION
  Report Type: 
  Country: None (occurrence: None)
  Receive Date: 20100129
  Receipt Date: 20100119
  Transmission Date: 20100710
  Serious: Yes (Life-Threatening, Hospitalization)
  Sender: FDA-Public Use
  Company Number: RO-ELI_LILLY_AND_COMPANY-RO200809005089

PATIENT
  Sex: Male
  Weight: 96 kg

DRUGS (5)
  1. ZYPREXA [Suspect]
     Indication: SCHIZOPHRENIA
     Dosage: 20 MG, UNKNOWN
     Route: 065
     Dates: start: 20050530, end: 20070114
  2. ZYPREXA [Suspect]
     Dosage: 15 MG, DAILY (1/D)
     Route: 065
     Dates: start: 20070115
  3. CLONAZEPAM [Concomitant]
     Indication: INSOMNIA
     Dosage: 2 MG, DAILY (1/D)
     Dates: start: 20050530
  4. ROMPARKIN [Concomitant]
     Indication: AKATHISIA
     Dosage: 20 MG, OTHER
     Route: 048
     Dates: start: 20080101, end: 20080922
  5. ROMPARKIN [Concomitant]
     Dosage: 6 MG, EVERY 3 HRS
     Route: 048
     Dates: start: 20080922

REACTIONS (2)
  - AKATHISIA [None]
  - BRAIN NEOPLASM [None]
